FAERS Safety Report 17946864 (Version 4)
Quarter: 2020Q3

REPORT INFORMATION
  Report Type: Spontaneous
  Country: US (occurrence: US)
  Receive Date: 20200626
  Receipt Date: 20200728
  Transmission Date: 20201103
  Serious: No
  Sender: FDA-Public Use
  Company Number: US-AMGEN-USASP2020100370

PATIENT
  Age: 5 Month
  Sex: Male
  Weight: 7.1 kg

DRUGS (3)
  1. IVABRADINE [Suspect]
     Active Substance: IVABRADINE
     Indication: TACHYCARDIA INDUCED CARDIOMYOPATHY
  2. AMIODARON [AMIODARONE] [Concomitant]
     Active Substance: AMIODARONE
     Dosage: UNK
  3. IVABRADINE [Suspect]
     Active Substance: IVABRADINE
     Indication: ATRIAL TACHYCARDIA
     Dosage: 0.18 MILLIGRAM, BID (0.05 MG/KG/DAY)

REACTIONS (3)
  - Supraventricular extrasystoles [Unknown]
  - Off label use [Unknown]
  - Atrial tachycardia [Recovered/Resolved]
